FAERS Safety Report 6719206-1 (Version None)
Quarter: 2010Q2

REPORT INFORMATION
  Report Type: 
  Country: None (occurrence: None)
  Receive Date: 20100511
  Receipt Date: 20100505
  Transmission Date: 20101027
  Serious: Yes (Hospitalization)
  Sender: FDA-Public Use
  Company Number: GB-ASTRAZENECA-2010SE20557

PATIENT
  Age: 18 Month
  Sex: Female

DRUGS (1)
  1. CRESTOR [Suspect]
     Indication: OVERDOSE
     Dosage: HALF DOZEN OF CRESTOR 10 MG
     Route: 048
     Dates: start: 20100501

REACTIONS (3)
  - ACCIDENTAL DRUG INTAKE BY CHILD [None]
  - PERIPHERAL COLDNESS [None]
  - PYREXIA [None]
